FAERS Safety Report 14038793 (Version 1)
Quarter: 2017Q4

REPORT INFORMATION
  Report Type: Spontaneous
  Country: US (occurrence: US)
  Receive Date: 20171004
  Receipt Date: 20171004
  Transmission Date: 20180321
  Serious: Yes (Life-Threatening, Disabling, Other)
  Sender: FDA-Public Use
  Company Number: US-MYLANLABS-2008S1011789

PATIENT
  Sex: Female
  Weight: 108.86 kg

DRUGS (9)
  1. VITAMIN C [Concomitant]
     Active Substance: ASCORBIC ACID
     Dosage: UNK
     Dates: end: 20071217
  2. TAURINE [Concomitant]
     Active Substance: TAURINE
     Dosage: UNK
     Dates: start: 20071218
  3. VITAMIN E [Concomitant]
     Active Substance: .ALPHA.-TOCOPHEROL
     Dosage: UNK
  4. CHONDROITIN [Concomitant]
     Active Substance: CHONDROITIN
     Dosage: UNK
     Dates: end: 20071217
  5. DILTIAZEM. [Suspect]
     Active Substance: DILTIAZEM
     Indication: ATRIAL FIBRILLATION
     Dosage: 120 MG,BID
     Route: 048
     Dates: start: 20060831, end: 20071216
  6. MSM WITH GLUCOSAMINE /05460301/ [Concomitant]
     Dosage: UNK
     Dates: end: 20071217
  7. DILTIAZEM HYDROCHLORIDE. [Suspect]
     Active Substance: DILTIAZEM HYDROCHLORIDE
     Indication: ATRIAL FIBRILLATION
     Dosage: UNK UNK,ONCE
     Route: 048
     Dates: start: 20071217, end: 20071217
  8. WARFARIN SODIUM. [Concomitant]
     Active Substance: WARFARIN SODIUM
     Dosage: UNK
     Dates: start: 2006, end: 20071217
  9. VIT B COMPLEX [Concomitant]
     Dosage: UNK
     Dates: end: 20071217

REACTIONS (15)
  - Muscular weakness [Not Recovered/Not Resolved]
  - Oedema peripheral [Not Recovered/Not Resolved]
  - Tremor [Not Recovered/Not Resolved]
  - Back pain [Not Recovered/Not Resolved]
  - Thirst [Not Recovered/Not Resolved]
  - Arthralgia [Not Recovered/Not Resolved]
  - Gait inability [Not Recovered/Not Resolved]
  - Incontinence [Not Recovered/Not Resolved]
  - Pain in extremity [Not Recovered/Not Resolved]
  - Vision blurred [Not Recovered/Not Resolved]
  - Headache [Not Recovered/Not Resolved]
  - Asthenia [Not Recovered/Not Resolved]
  - Localised oedema [Not Recovered/Not Resolved]
  - Flatulence [Not Recovered/Not Resolved]
  - Product quality issue [Unknown]
